FAERS Safety Report 18545150 (Version 1)
Quarter: 2020Q4

REPORT INFORMATION
  Report Type: Spontaneous
  Country: US (occurrence: US)
  Receive Date: 20201125
  Receipt Date: 20201125
  Transmission Date: 20210114
  Serious: No
  Sender: FDA-Public Use
  Company Number: US-SA-2019SA358187

PATIENT

DRUGS (1)
  1. DUPIXENT [Suspect]
     Active Substance: DUPILUMAB
     Dosage: 300 MG; INJECT 1 SYRINGE
     Route: 058
     Dates: start: 20181228

REACTIONS (2)
  - Condition aggravated [Unknown]
  - Product dose omission issue [Unknown]
